FAERS Safety Report 14604424 (Version 1)
Quarter: 2018Q1

REPORT INFORMATION
  Report Type: Spontaneous
  Country: FI (occurrence: FI)
  Receive Date: 20180306
  Receipt Date: 20180306
  Transmission Date: 20180509
  Serious: Yes (Hospitalization)
  Sender: FDA-Public Use
  Company Number: FI-ELI_LILLY_AND_COMPANY-FI201802010028

PATIENT
  Age: 25 Year
  Sex: Female

DRUGS (8)
  1. LANTUS [Suspect]
     Active Substance: INSULIN GLARGINE
     Indication: TYPE 1 DIABETES MELLITUS
     Dosage: 33 IU, UNKNOWN
     Route: 051
     Dates: end: 20080101
  2. LANTUS [Suspect]
     Active Substance: INSULIN GLARGINE
     Dosage: 28 IU, UNKNOWN
     Route: 051
     Dates: start: 20080101, end: 20080101
  3. NOVORAPID [Suspect]
     Active Substance: INSULIN ASPART
     Indication: TYPE 1 DIABETES MELLITUS
     Dosage: UNK UNK, UNKNOWN
     Route: 065
     Dates: start: 20080101
  4. HUMALOG [Suspect]
     Active Substance: INSULIN LISPRO
     Indication: TYPE 1 DIABETES MELLITUS
     Dosage: 8-10 IU, TID
     Route: 065
     Dates: end: 20080101
  5. LANTUS [Suspect]
     Active Substance: INSULIN GLARGINE
     Dosage: 20 IU, EACH EVENING
     Route: 051
     Dates: start: 20080101, end: 20080401
  6. LANTUS [Suspect]
     Active Substance: INSULIN GLARGINE
     Dosage: 20 IU, UNKNOWN
     Route: 051
     Dates: start: 20090401, end: 20090901
  7. HUMALOG [Suspect]
     Active Substance: INSULIN LISPRO
     Dosage: UNK UNK, UNKNOWN
     Route: 065
     Dates: start: 20080101
  8. LANTUS [Suspect]
     Active Substance: INSULIN GLARGINE
     Dosage: 4 IU, EACH MORNING
     Route: 051
     Dates: start: 20080101, end: 20080401

REACTIONS (6)
  - Seizure [Unknown]
  - Amnesia [Unknown]
  - Blood glucose fluctuation [Unknown]
  - Loss of consciousness [Unknown]
  - Hypoglycaemia [Unknown]
  - Fall [Unknown]

NARRATIVE: CASE EVENT DATE: 20080101
